FAERS Safety Report 6955185-X (Version None)
Quarter: 2010Q3

REPORT INFORMATION
  Report Type: 
  Country: None (occurrence: None)
  Receive Date: 20100830
  Receipt Date: 20100817
  Transmission Date: 20110219
  Serious: Yes (Other)
  Sender: FDA-Public Use
  Company Number: ES-PAR PHARMACEUTICAL, INC-2010SCPR002002

PATIENT

DRUGS (1)
  1. CAPTOPRIL [Suspect]
     Indication: PRODUCT USED FOR UNKNOWN INDICATION
     Dosage: 50 MG, BID
     Route: 048
     Dates: start: 20040128

REACTIONS (2)
  - DYSPNOEA [None]
  - PALATAL OEDEMA [None]
